FAERS Safety Report 7351637-1 (Version None)
Quarter: 2011Q1

REPORT INFORMATION
  Report Type: 
  Country: None (occurrence: None)
  Receive Date: 20110315
  Receipt Date: 20110308
  Transmission Date: 20110831
  Serious: Yes (Hospitalization)
  Sender: FDA-Public Use
  Company Number: US-BIOGENIDEC-2011BI008942

PATIENT
  Age: 53 Year
  Sex: Male

DRUGS (3)
  1. TYSABRI [Suspect]
     Indication: MULTIPLE SCLEROSIS
     Route: 042
     Dates: start: 20100112
  2. HUMALOG [Concomitant]
     Indication: BLOOD GLUCOSE INCREASED
  3. LANTUS [Concomitant]
     Indication: BLOOD GLUCOSE INCREASED

REACTIONS (3)
  - BLOOD GLUCOSE INCREASED [None]
  - DIARRHOEA [None]
  - CONSTIPATION [None]
